FAERS Safety Report 6279717-2 (Version None)
Quarter: 2009Q3

REPORT INFORMATION
  Report Type: 
  Country: None (occurrence: None)
  Receive Date: 20090721
  Receipt Date: 20090714
  Transmission Date: 20100115
  Serious: Yes (Death)
  Sender: FDA-Public Use
  Company Number: 2009JP002470

PATIENT
  Age: 64 Year
  Sex: Male
  Weight: 36.6 kg

DRUGS (4)
  1. PROGRAF [Suspect]
     Indication: RHEUMATOID ARTHRITIS
     Dosage: 2 MG, UID/QD, ORAL
     Route: 048
     Dates: start: 20061011, end: 20080610
  2. RHEUMATREX [Suspect]
     Indication: RHEUMATOID ARTHRITIS
     Dosage: 4 MG, BID,ORAL
     Route: 048
     Dates: start: 19991125, end: 20080910
  3. PENICILLAMINE [Concomitant]
  4. PREDNISOLONE [Concomitant]

REACTIONS (6)
  - DECREASED APPETITE [None]
  - DYSPEPSIA [None]
  - INTERSTITIAL LUNG DISEASE [None]
  - LUNG NEOPLASM MALIGNANT [None]
  - MUSCULOSKELETAL PAIN [None]
  - RESPIRATORY FAILURE [None]
